FAERS Safety Report 8795674 (Version 1)
Quarter: 2012Q4

REPORT INFORMATION
  Report Type: 
  Country: CH (occurrence: CH)
  Receive Date: 20120920
  Receipt Date: 20120920
  Transmission Date: 20130627
  Serious: Yes (Other)
  Sender: FDA-Public Use
  Company Number: CH-ASTRAZENECA-2012SE71224

PATIENT
  Age: 26 Year
  Sex: Female
  Weight: 47.8 kg

DRUGS (12)
  1. ESOMEPRAZOLE [Suspect]
     Route: 048
     Dates: start: 20120810, end: 20120822
  2. BACTRIM [Suspect]
     Route: 048
     Dates: start: 20120811, end: 20120822
  3. BACTRIM [Suspect]
     Dosage: 400/80MG PER DAY
     Route: 048
     Dates: start: 20120811
  4. PROGRAF [Suspect]
     Indication: RENAL TRANSPLANT
     Route: 048
  5. PROGRAF [Suspect]
     Indication: RENAL TRANSPLANT
     Route: 048
     Dates: start: 20120809
  6. BELOC ZOK [Concomitant]
     Route: 048
     Dates: start: 20120508, end: 20120811
  7. CELLCEPT [Concomitant]
     Indication: RENAL TRANSPLANT
     Route: 048
     Dates: start: 20120809
  8. DAFALGAN [Concomitant]
     Route: 048
     Dates: start: 20120811, end: 20120815
  9. NOVALGIN [Concomitant]
     Route: 048
     Dates: start: 20120811, end: 20120813
  10. PREDNISON [Concomitant]
     Indication: RENAL TRANSPLANT
     Route: 048
     Dates: start: 20120810
  11. HEPARIN [Concomitant]
     Route: 042
     Dates: start: 20120809, end: 20120814
  12. AMPHO MORONAL [Concomitant]
     Route: 002
     Dates: start: 20120809

REACTIONS (1)
  - Liver injury [Recovering/Resolving]
